FAERS Safety Report 22706691 (Version 2)
Quarter: 2024Q1

REPORT INFORMATION
  Report Type: Spontaneous
  Country: US (occurrence: US)
  Receive Date: 20230714
  Receipt Date: 20240322
  Transmission Date: 20240410
  Serious: Yes (Death)
  Sender: FDA-Public Use
  Company Number: US-PFIZER INC-202300122612

PATIENT
  Age: 85 Year
  Sex: Female
  Weight: 48.08 kg

DRUGS (1)
  1. TIKOSYN [Suspect]
     Active Substance: DOFETILIDE
     Indication: Cardiac disorder
     Dosage: 125, 2X/DAY (MORNING AND EVENING)

REACTIONS (2)
  - Death [Fatal]
  - Anxiety [Unknown]
